FAERS Safety Report 6681676-5 (Version None)
Quarter: 2010Q2

REPORT INFORMATION
  Report Type: 
  Country: None (occurrence: None)
  Receive Date: 20100412
  Receipt Date: 20100402
  Transmission Date: 20101027
  Serious: Yes (Hospitalization)
  Sender: FDA-Public Use
  Company Number: MSTR-NO-1001S-0018

PATIENT
  Age: 86 Year
  Sex: Male

DRUGS (1)
  1. METASTRON [Suspect]
     Indication: METASTATIC PAIN
     Dosage: 141 MGQ, SINGLE DOSE, I.V.
     Route: 042
     Dates: start: 20091127, end: 20091127

REACTIONS (3)
  - BACK PAIN [None]
  - BONE MARROW FAILURE [None]
  - PLEURAL EFFUSION [None]
